FAERS Safety Report 22625882 (Version 20)
Quarter: 2025Q3

REPORT INFORMATION
  Report Type: Report from Study
  Country: CA (occurrence: CA)
  Receive Date: 20230621
  Receipt Date: 20250718
  Transmission Date: 20251021
  Serious: Yes (Death, Hospitalization, Other)
  Sender: HLS THERAPEUTICS
  Company Number: CA-HLS-202301551

PATIENT
  Age: 71 Year
  Sex: Male

DRUGS (30)
  1. CLOZARIL [Suspect]
     Active Substance: CLOZAPINE
     Indication: Bipolar disorder
     Route: 048
  2. CLOZARIL [Suspect]
     Active Substance: CLOZAPINE
     Indication: Bipolar disorder
     Route: 065
  3. CLOZARIL [Suspect]
     Active Substance: CLOZAPINE
     Indication: Bipolar disorder
     Route: 065
  4. VALPROIC ACID [Concomitant]
     Active Substance: VALPROIC ACID
     Indication: Product used for unknown indication
     Route: 048
  5. atropine sulfate 1 % [Concomitant]
     Indication: Salivary hypersecretion
     Route: 065
  6. TYLENOL [Concomitant]
     Active Substance: ACETAMINOPHEN
     Indication: Pain
     Route: 065
  7. TYLENOL [Concomitant]
     Active Substance: ACETAMINOPHEN
     Indication: Pain
     Route: 065
  8. SENNA [Concomitant]
     Active Substance: SENNOSIDES
     Indication: Product used for unknown indication
     Route: 065
  9. MELATONIN [Concomitant]
     Active Substance: MELATONIN
     Indication: Product used for unknown indication
     Route: 060
  10. LACTULOSE [Concomitant]
     Active Substance: LACTULOSE
     Indication: Product used for unknown indication
     Route: 065
  11. LACTULOSE [Concomitant]
     Active Substance: LACTULOSE
     Indication: Product used for unknown indication
     Route: 065
  12. FUROSEMIDE [Concomitant]
     Active Substance: FUROSEMIDE
     Indication: Product used for unknown indication
     Route: 065
  13. petrolatum ointment [Concomitant]
     Indication: Product used for unknown indication
     Route: 065
  14. FLEET ENEMA [Concomitant]
     Active Substance: SODIUM PHOSPHATE, DIBASIC\SODIUM PHOSPHATE, MONOBASIC
     Indication: Constipation
     Route: 065
  15. IMOVANE [Concomitant]
     Active Substance: ZOPICLONE
     Indication: Insomnia
     Route: 065
  16. ATIVAN [Concomitant]
     Active Substance: LORAZEPAM
     Indication: Seizure
     Route: 065
  17. IMOVANE [Concomitant]
     Active Substance: ZOPICLONE
     Route: 065
  18. VITAMIN D3 [Concomitant]
     Active Substance: CHOLECALCIFEROL
     Indication: Product used for unknown indication
     Route: 048
  19. ACTONEL [Concomitant]
     Active Substance: RISEDRONATE SODIUM
     Indication: Product used for unknown indication
     Route: 048
  20. SEROQUEL [Concomitant]
     Active Substance: QUETIAPINE FUMARATE
     Indication: Agitation
     Route: 048
  21. POLYETHYLENE GLYCOL 3350 [Concomitant]
     Active Substance: POLYETHYLENE GLYCOL 3350
     Indication: Product used for unknown indication
     Route: 048
  22. ATIVAN [Concomitant]
     Active Substance: LORAZEPAM
     Indication: Seizure
     Route: 060
  23. EUTHYROX [Concomitant]
     Active Substance: LEVOTHYROXINE SODIUM
     Indication: Product used for unknown indication
     Route: 065
  24. Barriere-HC [Concomitant]
     Indication: Rash
     Route: 065
  25. JUBLIA [Concomitant]
     Active Substance: EFINACONAZOLE
     Indication: Product used for unknown indication
     Route: 065
  26. Balminil DM [Concomitant]
     Indication: Cough
     Route: 048
  27. CLOBAZAM [Concomitant]
     Active Substance: CLOBAZAM
     Indication: Product used for unknown indication
     Route: 048
  28. pharma-cal [Concomitant]
     Indication: Product used for unknown indication
     Route: 048
  29. BISACODYL [Concomitant]
     Active Substance: BISACODYL
     Indication: Constipation
     Dosage: 10 MG ORALLY EVERY 24 HOURS
     Route: 048
  30. Zinaderm [Concomitant]
     Indication: Erythema
     Route: 065

REACTIONS (39)
  - Ammonia increased [Unknown]
  - Neutropenia [Recovered/Resolved]
  - Bacterial infection [Unknown]
  - Hypotension [Not Recovered/Not Resolved]
  - Hip fracture [Unknown]
  - Agitation [Unknown]
  - Catatonia [Unknown]
  - Cholecystitis [Unknown]
  - C-reactive protein increased [Unknown]
  - Psychiatric decompensation [Unknown]
  - Delirium [Unknown]
  - Tooth disorder [Unknown]
  - Behaviour disorder [Unknown]
  - Hepatic enzyme increased [Unknown]
  - White blood cell count increased [Unknown]
  - Fall [Unknown]
  - Generalised tonic-clonic seizure [Unknown]
  - High density lipoprotein decreased [Unknown]
  - Hypothyroidism [Unknown]
  - Illness [Unknown]
  - General physical health deterioration [Unknown]
  - Thrombocytopenia [Unknown]
  - Parkinsonism [Unknown]
  - Mobility decreased [Unknown]
  - Electrocardiogram T wave abnormal [Unknown]
  - Death [Fatal]
  - Platelet count decreased [Unknown]
  - Pleural effusion [Unknown]
  - Nail disorder [Unknown]
  - Condition aggravated [Unknown]
  - Hallucination [Unknown]
  - Skin infection [Unknown]
  - Somnolence [Not Recovered/Not Resolved]
  - Ulcer [Unknown]
  - Tooth infection [Unknown]
  - Troponin increased [Unknown]
  - Off label use [Unknown]
  - Urinary tract infection [Unknown]
  - Leukopenia [Recovered/Resolved]

NARRATIVE: CASE EVENT DATE: 20230601
